FAERS Safety Report 10888820 (Version 3)
Quarter: 2015Q2

REPORT INFORMATION
  Report Type: Spontaneous
  Country: FR (occurrence: FR)
  Receive Date: 20150305
  Receipt Date: 20150409
  Transmission Date: 20150821
  Serious: Yes (Death, Life-Threatening, Hospitalization)
  Sender: FDA-Public Use
  Company Number: FR-ROCHE-1548342

PATIENT
  Age: 57 Year
  Sex: Female

DRUGS (9)
  1. HERCEPTIN [Suspect]
     Active Substance: TRASTUZUMAB
     Indication: INVASIVE DUCTAL BREAST CARCINOMA
     Route: 041
     Dates: start: 20150130
  2. DOCETAXEL HOSPIRA [Suspect]
     Active Substance: DOCETAXEL
     Indication: METASTASES TO LIVER
  3. PERJETA [Suspect]
     Active Substance: PERTUZUMAB
     Indication: METASTASES TO LUNG
  4. DOCETAXEL HOSPIRA [Suspect]
     Active Substance: DOCETAXEL
     Indication: METASTASES TO LUNG
  5. PERJETA [Suspect]
     Active Substance: PERTUZUMAB
     Indication: INVASIVE DUCTAL BREAST CARCINOMA
     Route: 041
     Dates: start: 20150130
  6. PERJETA [Suspect]
     Active Substance: PERTUZUMAB
     Indication: METASTASES TO LIVER
  7. HERCEPTIN [Suspect]
     Active Substance: TRASTUZUMAB
     Indication: METASTASES TO LIVER
  8. HERCEPTIN [Suspect]
     Active Substance: TRASTUZUMAB
     Indication: METASTASES TO LUNG
  9. DOCETAXEL HOSPIRA [Suspect]
     Active Substance: DOCETAXEL
     Indication: INVASIVE DUCTAL BREAST CARCINOMA
     Route: 041
     Dates: start: 20150130

REACTIONS (4)
  - Somnolence [Fatal]
  - Tumour lysis syndrome [Fatal]
  - Abnormal behaviour [Fatal]
  - Pancytopenia [Fatal]

NARRATIVE: CASE EVENT DATE: 20150201
